FAERS Safety Report 7470163-2 (Version None)
Quarter: 2011Q2

REPORT INFORMATION
  Report Type: 
  Country: None (occurrence: None)
  Receive Date: 20110510
  Receipt Date: 20110502
  Transmission Date: 20111010
  Serious: Yes (Hospitalization)
  Sender: FDA-Public Use
  Company Number: B0717687B

PATIENT
  Sex: Female
  Weight: 63 kg

DRUGS (3)
  1. LENALIDOMIDE [Suspect]
     Indication: MULTIPLE MYELOMA
     Dosage: 7.5MG CYCLIC
     Route: 048
     Dates: start: 20080303, end: 20080630
  2. MELPHALAN HYDROCHLORIDE [Suspect]
     Indication: MULTIPLE MYELOMA
     Dosage: 12MG CYCLIC
     Dates: start: 20080303, end: 20080630
  3. PREDNISONE [Suspect]
     Indication: MULTIPLE MYELOMA
     Dosage: 127MG CYCLIC
     Dates: start: 20080303, end: 20080630

REACTIONS (1)
  - RENAL FAILURE [None]
